FAERS Safety Report 12881024 (Version 1)
Quarter: 2016Q4

REPORT INFORMATION
  Report Type: Spontaneous
  Country: US (occurrence: US)
  Receive Date: 20161024
  Receipt Date: 20161024
  Transmission Date: 20170207
  Serious: No
  Sender: FDA-Public Use
  Company Number: None

PATIENT
  Age: 57 Year
  Sex: Male
  Weight: 135 kg

DRUGS (1)
  1. EMPAGLIFLOZIN [Suspect]
     Active Substance: EMPAGLIFLOZIN
     Indication: DIABETES MELLITUS
     Route: 048
     Dates: start: 20160512, end: 20160607

REACTIONS (5)
  - Hypoaesthesia [None]
  - Dysphagia [None]
  - Pharyngeal oedema [None]
  - Hemiparesis [None]
  - Oropharyngeal pain [None]

NARRATIVE: CASE EVENT DATE: 20160607
